FAERS Safety Report 14036078 (Version 1)
Quarter: 2017Q4

REPORT INFORMATION
  Report Type: Spontaneous
  Country: US (occurrence: US)
  Receive Date: 20171003
  Receipt Date: 20171003
  Transmission Date: 20180321
  Serious: No
  Sender: FDA-Public Use
  Company Number: US-ROCHE-1956552

PATIENT
  Age: 58 Year
  Sex: Male
  Weight: 81.27 kg

DRUGS (4)
  1. ZELBORAF [Suspect]
     Active Substance: VEMURAFENIB
     Dosage: 2 PILLS IN MORNING AND 2 PILLS AT NIGHT
     Route: 048
     Dates: start: 201705, end: 20170622
  2. COTELLIC [Suspect]
     Active Substance: COBIMETINIB
     Indication: THYROID CANCER METASTATIC
     Dosage: 3 PILLS AT NIGHT
     Route: 048
     Dates: start: 201606, end: 20170622
  3. ZELBORAF [Suspect]
     Active Substance: VEMURAFENIB
     Dosage: 3 PILLS IN MORNING AND 3 PILLS AT NIGHT
     Route: 048
     Dates: start: 201703, end: 201705
  4. ZELBORAF [Suspect]
     Active Substance: VEMURAFENIB
     Indication: THYROID CANCER METASTATIC
     Dosage: 4 PILLS IN MORNING AND 4 PILLS AT NIGHT
     Route: 048
     Dates: start: 201606, end: 201703

REACTIONS (7)
  - Fatigue [Recovered/Resolved]
  - Renal disorder [Not Recovered/Not Resolved]
  - Gastric disorder [Recovered/Resolved]
  - Dehydration [Recovered/Resolved]
  - Blood creatinine increased [Not Recovered/Not Resolved]
  - Diarrhoea [Recovered/Resolved]
  - Off label use [Unknown]

NARRATIVE: CASE EVENT DATE: 201606
